FAERS Safety Report 4506044-3 (Version None)
Quarter: 2004Q4

REPORT INFORMATION
  Report Type: 
  Country: None (occurrence: None)
  Receive Date: 20041025
  Receipt Date: 20031009
  Transmission Date: 20050328
  Serious: Yes (Hospitalization)
  Sender: FDA-Public Use
  Company Number: US-JNJFOC-20030805228

PATIENT
  Age: 46 Year
  Sex: Male

DRUGS (3)
  1. REMICADE [Suspect]
     Indication: RHEUMATOID ARTHRITIS
     Dosage: INTRAVENOUS
     Route: 042
     Dates: start: 20010601
  2. METHOTREXATE SODIUM [Concomitant]
  3. ARAVA [Concomitant]

REACTIONS (8)
  - DIARRHOEA HAEMORRHAGIC [None]
  - GASTROENTERITIS STAPHYLOCOCCAL [None]
  - LEUKOPENIA [None]
  - LISTERIOSIS [None]
  - LIVER FUNCTION TEST ABNORMAL [None]
  - RENAL FAILURE ACUTE [None]
  - RHEUMATOID ARTHRITIS [None]
  - SEPTIC SHOCK [None]
